FAERS Safety Report 7097572-8 (Version None)
Quarter: 2010Q4

REPORT INFORMATION
  Report Type: 
  Country: None (occurrence: None)
  Receive Date: 20101111
  Receipt Date: 20101029
  Transmission Date: 20110411
  Serious: Yes (Other)
  Sender: FDA-Public Use
  Company Number: GB-MYLANLABS-2010S1019989

PATIENT
  Age: 37 Year
  Sex: Male

DRUGS (2)
  1. GABAPENTIN [Suspect]
     Indication: OSTEOCHONDROSIS
     Route: 048
     Dates: start: 20100401, end: 20100601
  2. PREGABALIN [Concomitant]
     Indication: OSTEOCHONDROSIS
     Route: 048
     Dates: start: 20091201, end: 20100401

REACTIONS (2)
  - GINGIVITIS [None]
  - TEETH BRITTLE [None]
